FAERS Safety Report 9765220 (Version 1)
Quarter: 2013Q4

REPORT INFORMATION
  Report Type: Spontaneous
  Country: US (occurrence: None)
  Receive Date: 20131216
  Receipt Date: 20131216
  Transmission Date: 20140711
  Serious: Yes (Life-Threatening)
  Sender: FDA-Public Use
  Company Number: None

PATIENT
  Age: 41 Year
  Sex: Female
  Weight: 66.68 kg

DRUGS (2)
  1. LAMICTAL [Suspect]
     Indication: BIPOLAR I DISORDER
     Dosage: ONCE DAILY TAKEN BY MOUTH
     Route: 048
  2. LAMICTAL [Suspect]
     Indication: DEPRESSION
     Dosage: ONCE DAILY TAKEN BY MOUTH
     Route: 048

REACTIONS (4)
  - Pain [None]
  - Pyrexia [None]
  - Rash generalised [None]
  - Drug ineffective [None]
